FAERS Safety Report 20028185 (Version 1)
Quarter: 2021Q4

REPORT INFORMATION
  Report Type: Spontaneous
  Country: US (occurrence: US)
  Receive Date: 20211103
  Receipt Date: 20211103
  Transmission Date: 20220303
  Serious: Yes (Death, Hospitalization, Other)
  Sender: FDA-Public Use
  Company Number: US-APOTEX-2021AP045191

PATIENT
  Age: 34 Year
  Sex: Female

DRUGS (1)
  1. FENTANYL [Suspect]
     Active Substance: FENTANYL
     Indication: Product used for unknown indication
     Dosage: UNK
     Route: 065

REACTIONS (13)
  - Hepatotoxicity [Fatal]
  - Myocardial injury [Fatal]
  - Myocardial ischaemia [Fatal]
  - Acute respiratory distress syndrome [Fatal]
  - Acute lung injury [Fatal]
  - Coma [Fatal]
  - Depressed level of consciousness [Fatal]
  - Acute kidney injury [Fatal]
  - Toxicity to various agents [Fatal]
  - Bradypnoea [Fatal]
  - Hypotension [Fatal]
  - Metabolic acidosis [Fatal]
  - Respiratory depression [Fatal]
